FAERS Safety Report 15509655 (Version 1)
Quarter: 2018Q4

REPORT INFORMATION
  Report Type: Spontaneous
  Country: US (occurrence: US)
  Receive Date: 20181010
  Receipt Date: 20181010
  Transmission Date: 20190205
  Serious: No
  Sender: FDA-Public Use
  Company Number: None

PATIENT
  Age: 86 Year
  Sex: Male

DRUGS (1)
  1. LUPRON DEPOT [Suspect]
     Active Substance: LEUPROLIDE ACETATE
     Indication: PROSTATE CANCER
     Dosage: ?          OTHER DOSE:22.5 MG;OTHER FREQUENCY:EVERY 3 MONTHS;?
     Route: 041
     Dates: start: 20180615

REACTIONS (1)
  - Bone cancer [None]

NARRATIVE: CASE EVENT DATE: 20181008
